FAERS Safety Report 22094905 (Version 1)
Quarter: 2023Q1

REPORT INFORMATION
  Report Type: Spontaneous
  Country: CN (occurrence: CN)
  Receive Date: 20230314
  Receipt Date: 20230314
  Transmission Date: 20230417
  Serious: Yes (Hospitalization)
  Sender: FDA-Public Use
  Company Number: CN-ELI_LILLY_AND_COMPANY-CN202303001222

PATIENT
  Sex: Male

DRUGS (1)
  1. INSULIN HUMAN [Suspect]
     Active Substance: INSULIN HUMAN
     Indication: Diabetes mellitus
     Dosage: 30 U, UNKNOWN
     Route: 065

REACTIONS (4)
  - Blood glucose increased [Recovered/Resolved]
  - Headache [Unknown]
  - Vertigo [Unknown]
  - Nausea [Unknown]
